FAERS Safety Report 7912566-5 (Version None)
Quarter: 2011Q4

REPORT INFORMATION
  Report Type: 
  Country: None (occurrence: None)
  Receive Date: 20111114
  Receipt Date: 20111108
  Transmission Date: 20120403
  Serious: Yes (Other)
  Sender: FDA-Public Use
  Company Number: US-PFIZER INC-2011203130

PATIENT
  Sex: Female

DRUGS (3)
  1. CHANTIX [Suspect]
     Indication: SMOKING CESSATION THERAPY
     Dosage: UNK
     Dates: start: 20070921
  2. CHANTIX [Suspect]
     Dosage: UNK
     Dates: start: 20080501, end: 20080101
  3. SYNTHROID [Concomitant]
     Dosage: UNK
     Dates: start: 20000101

REACTIONS (4)
  - SUICIDE ATTEMPT [None]
  - MENTAL DISORDER [None]
  - DEPRESSION [None]
  - ANXIETY [None]
